FAERS Safety Report 6860708-5 (Version None)
Quarter: 2010Q3

REPORT INFORMATION
  Report Type: 
  Country: None (occurrence: None)
  Receive Date: 20100720
  Receipt Date: 20100621
  Transmission Date: 20110219
  Serious: No
  Sender: FDA-Public Use
  Company Number: US-NOVEN-10US001333

PATIENT
  Age: 57 Year
  Sex: Female

DRUGS (2)
  1. FENTANYL CITRATE [Suspect]
     Indication: PAIN
     Dosage: 50 UG/HR Q72 HOURS
     Route: 062
     Dates: start: 20100501, end: 20100101
  2. BREAKTHROUGH PAIN MEDICATION [Concomitant]
     Indication: BREAKTHROUGH PAIN

REACTIONS (1)
  - INADEQUATE ANALGESIA [None]
